FAERS Safety Report 17368968 (Version 1)
Quarter: 2020Q1

REPORT INFORMATION
  Report Type: Spontaneous
  Country: US (occurrence: US)
  Receive Date: 20200204
  Receipt Date: 20200204
  Transmission Date: 20200409
  Serious: Yes (Other)
  Sender: FDA-Public Use
  Company Number: US-SA-2020SA026612

PATIENT
  Sex: Female

DRUGS (1)
  1. ZANTAC 75 [Suspect]
     Active Substance: RANITIDINE HYDROCHLORIDE
     Dosage: UNK
     Dates: start: 1988, end: 202001

REACTIONS (3)
  - Emotional distress [Not Recovered/Not Resolved]
  - Pain [Unknown]
  - Renal cancer [Unknown]

NARRATIVE: CASE EVENT DATE: 2006
